FAERS Safety Report 16778162 (Version 1)
Quarter: 2019Q3

REPORT INFORMATION
  Report Type: Spontaneous
  Country: US (occurrence: US)
  Receive Date: 20190905
  Receipt Date: 20190905
  Transmission Date: 20191005
  Serious: Yes (Hospitalization, Other)
  Sender: FDA-Public Use
  Company Number: US-NOVOPROD-681887

PATIENT
  Age: 75 Year
  Sex: Female

DRUGS (1)
  1. LEVEMIR [Suspect]
     Active Substance: INSULIN DETEMIR
     Indication: TYPE 2 DIABETES MELLITUS
     Dosage: 50 UNITS THEN 70 UNITS
     Route: 058

REACTIONS (8)
  - Diplopia [Unknown]
  - Gait disturbance [Unknown]
  - Anxiety [Unknown]
  - Cerebrovascular accident [Not Recovered/Not Resolved]
  - Macular degeneration [Not Recovered/Not Resolved]
  - Fall [Unknown]
  - Weight decreased [Unknown]
  - Visual impairment [Not Recovered/Not Resolved]

NARRATIVE: CASE EVENT DATE: 201908
